FAERS Safety Report 13844931 (Version 1)
Quarter: 2017Q3

REPORT INFORMATION
  Report Type: Spontaneous
  Country: GB (occurrence: GB)
  Receive Date: 20170808
  Receipt Date: 20170808
  Transmission Date: 20171127
  Serious: Yes (Life-Threatening, Other)
  Sender: FDA-Public Use
  Company Number: GB-TEVA-792748ACC

PATIENT
  Age: 49 Year
  Sex: Female
  Weight: 82.72 kg

DRUGS (2)
  1. LIDOCAINE. [Suspect]
     Active Substance: LIDOCAINE
     Indication: ANAESTHESIA
     Dosage: 200MG/20ML.
     Route: 042
     Dates: start: 20170704
  2. ELLESTE-SOLO [Concomitant]
     Dosage: 1 MILLIGRAM DAILY;
     Dates: start: 20161115

REACTIONS (1)
  - Anaphylactic reaction [Recovering/Resolving]

NARRATIVE: CASE EVENT DATE: 20170704
